FAERS Safety Report 15779235 (Version 2)
Quarter: 2019Q1

REPORT INFORMATION
  Report Type: Spontaneous
  Country: US (occurrence: US)
  Receive Date: 20190101
  Receipt Date: 20190102
  Transmission Date: 20190417
  Serious: Yes (Other)
  Sender: FDA-Public Use
  Company Number: US-PFIZER INC-2018535962

PATIENT
  Age: 61 Year
  Sex: Male

DRUGS (2)
  1. PRAVASTATIN. [Interacting]
     Active Substance: PRAVASTATIN
     Dosage: 40 MG, UNK
  2. VFEND [Suspect]
     Active Substance: VORICONAZOLE
     Dosage: 200 MG, 2X/DAY

REACTIONS (4)
  - Urinary retention [Unknown]
  - Labelled drug-drug interaction medication error [Unknown]
  - Drug hypersensitivity [Unknown]
  - Drug interaction [Unknown]
